FAERS Safety Report 16755411 (Version 1)
Quarter: 2019Q3

REPORT INFORMATION
  Report Type: Spontaneous
  Country: US (occurrence: US)
  Receive Date: 20190711
  Receipt Date: 20190711
  Transmission Date: 20191005
  Serious: No
  Sender: FDA-Public Use
  Company Number: None

PATIENT
  Age: 56 Year
  Sex: Female
  Weight: 79.38 kg

DRUGS (1)
  1. GLATIRAMER ACETATE INJECTION 80MG/ML [Suspect]
     Active Substance: GLATIRAMER ACETATE
     Indication: MULTIPLE SCLEROSIS
     Dates: start: 20190201

REACTIONS (7)
  - Feeling abnormal [None]
  - Asthenia [None]
  - Headache [None]
  - Anxiety [None]
  - Muscle spasms [None]
  - Pain [None]
  - Dry mouth [None]
